FAERS Safety Report 4548421-0 (Version None)
Quarter: 2004Q4

REPORT INFORMATION
  Report Type: 
  Country: None (occurrence: None)
  Receive Date: 20041227
  Receipt Date: 20041011
  Transmission Date: 20050328
  Serious: Yes (Hospitalization)
  Sender: FDA-Public Use
  Company Number: 04P-163-0277082-00

PATIENT
  Sex: Female

DRUGS (3)
  1. HUMIRA [Suspect]
     Indication: RHEUMATOID ARTHRITIS
     Dosage: 40 MG , 1 IN 2 W, SUBCUTANEOUS
     Route: 058
     Dates: start: 20040801, end: 20040929
  2. METHOTREXATE SODIUM [Concomitant]
  3. OXYCONTIN [Concomitant]

REACTIONS (1)
  - MYOCARDIAL INFARCTION [None]
